FAERS Safety Report 12341999 (Version 1)
Quarter: 2016Q2

REPORT INFORMATION
  Report Type: Spontaneous
  Country: US (occurrence: None)
  Receive Date: 20160505
  Receipt Date: 20160505
  Transmission Date: 20160815
  Serious: Yes (Hospitalization, Disabling)
  Sender: FDA-Public Use
  Company Number: None

PATIENT
  Age: 52 Year
  Sex: Female
  Weight: 97 kg

DRUGS (2)
  1. SIROLIMUS 2 MG [Suspect]
     Active Substance: SIROLIMUS
     Indication: PROPHYLAXIS AGAINST TRANSPLANT REJECTION
     Route: 048
     Dates: start: 20000101, end: 20150713
  2. SIROLIMUS 2 MG [Suspect]
     Active Substance: SIROLIMUS
     Indication: RENAL TRANSPLANT
     Route: 048
     Dates: start: 20000101, end: 20150713

REACTIONS (3)
  - Acute respiratory distress syndrome [None]
  - Respiratory failure [None]
  - Pulmonary toxicity [None]

NARRATIVE: CASE EVENT DATE: 20150705
